FAERS Safety Report 9958580 (Version 1)
Quarter: 2014Q1

REPORT INFORMATION
  Report Type: Spontaneous
  Country: US (occurrence: US)
  Receive Date: 20140305
  Receipt Date: 20140305
  Transmission Date: 20141002
  Serious: No
  Sender: FDA-Public Use
  Company Number: US-009507513-1402USA012175

PATIENT
  Sex: Female
  Weight: 65.76 kg

DRUGS (1)
  1. IMPLANON [Suspect]
     Indication: CONTRACEPTION
     Dosage: RIGHT ARM
     Route: 059
     Dates: start: 20120622

REACTIONS (4)
  - Haemorrhage [Unknown]
  - Attention deficit/hyperactivity disorder [Unknown]
  - Bipolar disorder [Unknown]
  - Depression [Unknown]
